FAERS Safety Report 6925364-6 (Version None)
Quarter: 2010Q3

REPORT INFORMATION
  Report Type: 
  Country: None (occurrence: None)
  Receive Date: 20100816
  Receipt Date: 20100806
  Transmission Date: 20110219
  Serious: Yes (Death, Hospitalization)
  Sender: FDA-Public Use
  Company Number: KP-BAYER-201032983GPV

PATIENT
  Age: 49 Year
  Sex: Male

DRUGS (19)
  1. SORAFENIB [Suspect]
     Indication: HEPATIC NEOPLASM MALIGNANT
     Dosage: TOTAL DAILY DOSE: 800 MG  UNIT DOSE: 200 MG
     Route: 048
     Dates: start: 20100623, end: 20100714
  2. LEVOVIR [Concomitant]
     Indication: HEPATITIS B
     Dates: start: 20100618
  3. LASIX [Concomitant]
     Indication: ASCITES
     Dates: start: 20100617, end: 20100714
  4. ALDACTON [Concomitant]
     Indication: ASCITES
     Dates: start: 20100617, end: 20100714
  5. LANSTON [Concomitant]
     Indication: HELICOBACTER INFECTION
     Dates: start: 20100619, end: 20100714
  6. ULTRACET [Concomitant]
     Indication: ABDOMINAL PAIN
     Dates: start: 20100616
  7. NORZYME [Concomitant]
     Indication: DYSPEPSIA
     Dates: start: 20100618
  8. GODEX [Concomitant]
     Indication: HEPATIC CIRRHOSIS
     Dates: start: 20100617, end: 20100716
  9. URUSA [Concomitant]
     Indication: HEPATIC CIRRHOSIS
     Dates: start: 20100617
  10. MACPERAN [Concomitant]
     Indication: NAUSEA
     Dates: start: 20100617
  11. LACTULOSE [Concomitant]
     Indication: CONSTIPATION
     Dates: start: 20100620
  12. MAGO [Concomitant]
     Indication: CONSTIPATION
     Dates: start: 20100621
  13. MEGESTROL ACETATE [Concomitant]
     Indication: DECREASED APPETITE
     Dates: start: 20100621
  14. SUCRALFATE [Concomitant]
     Indication: ABDOMINAL PAIN UPPER
     Dates: start: 20100626
  15. HEPASOL [Concomitant]
     Indication: DECREASED APPETITE
     Dates: start: 20100712
  16. KALIMATE [Concomitant]
     Indication: HYPERKALAEMIA
     Dates: start: 20100715
  17. BACLAN [Concomitant]
     Indication: HICCUPS
     Dates: start: 20100715
  18. HEPATAMIN [Concomitant]
     Indication: DECREASED APPETITE
     Dates: start: 20100715
  19. TAMIPOOL [Concomitant]
     Indication: DECREASED APPETITE
     Dates: start: 20100715

REACTIONS (3)
  - HEPATIC FAILURE [None]
  - HYPERBILIRUBINAEMIA [None]
  - HYPONATRAEMIA [None]
